FAERS Safety Report 19085488 (Version 1)
Quarter: 2021Q2

REPORT INFORMATION
  Report Type: Spontaneous
  Country: US (occurrence: US)
  Receive Date: 20210401
  Receipt Date: 20210401
  Transmission Date: 20210717
  Serious: No
  Sender: FDA-Public Use
  Company Number: US-IBSA PHARMA-2020-IBS-00704

PATIENT
  Age: 62 Year
  Weight: 215 kg

DRUGS (3)
  1. FLECTOR [Suspect]
     Active Substance: DICLOFENAC EPOLAMINE
     Indication: MUSCLE DISORDER
  2. FLECTOR [Suspect]
     Active Substance: DICLOFENAC EPOLAMINE
     Indication: INFLAMMATION
  3. FLECTOR [Suspect]
     Active Substance: DICLOFENAC EPOLAMINE
     Indication: PAIN
     Dosage: 1 DOSAGE FORM, OD
     Route: 061

REACTIONS (6)
  - Upper respiratory tract infection [Unknown]
  - Intentional product misuse [Unknown]
  - Poor quality product administered [Unknown]
  - Device use error [Unknown]
  - Drug ineffective [Unknown]
  - Product adhesion issue [Unknown]
